FAERS Safety Report 10204368 (Version 2)
Quarter: 2014Q2

REPORT INFORMATION
  Report Type: Spontaneous
  Country: US (occurrence: US)
  Receive Date: 20140529
  Receipt Date: 20140529
  Transmission Date: 20141212
  Serious: No
  Sender: FDA-Public Use
  Company Number: US-MYLANLABS-2013S1028221

PATIENT
  Age: 76 Year
  Sex: Female

DRUGS (7)
  1. AMITRIPTYLINE HYDROCHLORIDE TABLETS, USP [Suspect]
     Indication: PAIN
     Route: 048
     Dates: end: 2013
  2. AMITRIPTYLINE HYDROCHLORIDE TABLETS, USP [Suspect]
     Indication: OFF LABEL USE
     Route: 048
     Dates: end: 2013
  3. AMITRIPTYLINE HYDROCHLORIDE TABLETS, USP [Suspect]
     Indication: PAIN
     Route: 048
  4. AMITRIPTYLINE HYDROCHLORIDE TABLETS, USP [Suspect]
     Indication: OFF LABEL USE
     Route: 048
  5. GABAPENTIN [Concomitant]
     Indication: NEUROPATHY PERIPHERAL
  6. TUMS [Concomitant]
  7. ANTACID /00018101/ [Concomitant]

REACTIONS (2)
  - Dyspepsia [Recovered/Resolved]
  - Gastric disorder [Recovered/Resolved]
